FAERS Safety Report 8308356-4 (Version None)
Quarter: 2012Q2

REPORT INFORMATION
  Report Type: 
  Country: None (occurrence: None)
  Receive Date: 20120424
  Receipt Date: 20120417
  Transmission Date: 20120825
  Serious: Yes (Hospitalization)
  Sender: FDA-Public Use
  Company Number: US-SANOFI-AVENTIS-2012SA021667

PATIENT
  Age: 93 Year
  Sex: Male
  Weight: 65.77 kg

DRUGS (8)
  1. LANTUS [Suspect]
     Dosage: DOSE:28 UNIT(S)
     Route: 058
     Dates: start: 20120301, end: 20120301
  2. STOOL SOFTENER [Concomitant]
     Dosage: 3
  3. ASPIRIN [Concomitant]
  4. LANTUS [Suspect]
     Dosage: DOSE:22 UNIT(S)
     Route: 058
     Dates: start: 20020101, end: 20120301
  5. SOLOSTAR [Suspect]
  6. DIURETICS [Concomitant]
  7. LANTUS [Suspect]
     Dosage: DOSE:26 UNIT(S)
     Route: 058
     Dates: start: 20120301
  8. IRON [Concomitant]
     Dosage: 3 PILLS

REACTIONS (5)
  - ANAEMIA [None]
  - BLOOD GLUCOSE INCREASED [None]
  - PULMONARY OEDEMA [None]
  - WHEEZING [None]
  - MALAISE [None]
